FAERS Safety Report 7545089-6 (Version None)
Quarter: 2011Q2

REPORT INFORMATION
  Report Type: 
  Country: None (occurrence: None)
  Receive Date: 20110606
  Receipt Date: 20110520
  Transmission Date: 20111010
  Serious: Yes (Other)
  Sender: FDA-Public Use
  Company Number: AUR-APL-2011-01777

PATIENT
  Age: 72 Year
  Sex: Female
  Weight: 77.1115 kg

DRUGS (5)
  1. LANOXIN [Concomitant]
  2. VALACYCLOVIR HYDROCHLORIDE [Suspect]
     Indication: HERPES ZOSTER
     Dosage: 500MG-3 TABS-ORAL
     Route: 048
     Dates: start: 20110518, end: 20110519
  3. THEOPHYLLINE [Concomitant]
  4. DILTIAZEM [Concomitant]
  5. LOSARTAN (NORTHSTAR BRAND) [Concomitant]

REACTIONS (7)
  - HEART RATE INCREASED [None]
  - DRY MOUTH [None]
  - ERYTHEMA [None]
  - TREMOR [None]
  - NO REACTION ON PREVIOUS EXPOSURE TO DRUG [None]
  - HYPOAESTHESIA ORAL [None]
  - DYSPHAGIA [None]
